FAERS Safety Report 8152726-4 (Version None)
Quarter: 2012Q1

REPORT INFORMATION
  Report Type: 
  Country: None (occurrence: None)
  Receive Date: 20120221
  Receipt Date: 20120213
  Transmission Date: 20120608
  Serious: Yes (Hospitalization, Disabling)
  Sender: FDA-Public Use
  Company Number: JP-JNJFOC-20120208776

PATIENT
  Age: 67 Year
  Sex: Female

DRUGS (13)
  1. FUNGUARD [Concomitant]
     Route: 065
  2. PRIMPERAN TAB [Concomitant]
     Route: 065
  3. RAPIACTA [Suspect]
     Indication: INFLUENZA
     Route: 041
     Dates: start: 20120127, end: 20120127
  4. LANSOPRAZOLE [Concomitant]
     Route: 065
  5. CHLORPHENIRAMINE MALEATE [Concomitant]
     Route: 065
  6. ACETAMINOPHEN [Concomitant]
     Route: 065
  7. MUCODYNE [Concomitant]
     Route: 065
  8. SOLU-CORTEF [Concomitant]
     Route: 065
  9. VEEN-3G [Concomitant]
     Route: 065
  10. ITRACONAZOLE [Concomitant]
     Route: 065
  11. VANCOMYCIN [Suspect]
     Indication: ARTHRITIS INFECTIVE
     Route: 041
     Dates: start: 20120123, end: 20120126
  12. DORIPENEM MONOHYDRATE [Suspect]
     Indication: PRODUCT USED FOR UNKNOWN INDICATION
     Route: 041
  13. VANCOMYCIN [Suspect]
     Route: 041
     Dates: start: 20120126, end: 20120130

REACTIONS (2)
  - RENAL FAILURE ACUTE [None]
  - DEAFNESS [None]
